FAERS Safety Report 17017462 (Version 1)
Quarter: 2019Q4

REPORT INFORMATION
  Report Type: Spontaneous
  Country: US (occurrence: US)
  Receive Date: 20191111
  Receipt Date: 20191111
  Transmission Date: 20200122
  Serious: Yes (Hospitalization)
  Sender: FDA-Public Use
  Company Number: US-BAYER-2019-196477

PATIENT
  Sex: Male
  Weight: 117.91 kg

DRUGS (6)
  1. LENVIMA [Concomitant]
     Active Substance: LENVATINIB
     Indication: HEPATOCELLULAR CARCINOMA
  2. NORVASC [Concomitant]
     Active Substance: AMLODIPINE BESYLATE
     Dosage: UNK
  3. LENVIMA [Concomitant]
     Active Substance: LENVATINIB
     Indication: COLON CANCER STAGE 0
     Dosage: 12 MG, 3 X 4 MF DAILY
     Dates: start: 20190724
  4. STIVARGA [Suspect]
     Active Substance: REGORAFENIB
     Dosage: UNK
  5. AMLODIPINE [Concomitant]
     Active Substance: AMLODIPINE BESYLATE
     Indication: HYPERTENSION
     Dosage: UNK
  6. LASIX [Concomitant]
     Active Substance: FUROSEMIDE
     Dosage: UNK

REACTIONS (9)
  - Sinusitis [Unknown]
  - Cough [Unknown]
  - Arthralgia [Unknown]
  - Hypertension [Recovering/Resolving]
  - Musculoskeletal pain [Unknown]
  - Micturition disorder [Unknown]
  - Dehydration [Unknown]
  - Rhinorrhoea [Unknown]
  - Oropharyngeal pain [Unknown]
